FAERS Safety Report 9835371 (Version 1)
Quarter: 2014Q1

REPORT INFORMATION
  Report Type: Spontaneous
  Country: US (occurrence: US)
  Receive Date: 20140122
  Receipt Date: 20140122
  Transmission Date: 20141002
  Serious: No
  Sender: FDA-Public Use
  Company Number: US-BRISTOL-MYERS SQUIBB COMPANY-19515840

PATIENT
  Age: 86 Year
  Sex: Female

DRUGS (3)
  1. ELIQUIS [Suspect]
     Dosage: STRENGTH-5MG
  2. LANSOPRAZOLE [Concomitant]
  3. KEPPRA [Concomitant]
     Dosage: 1DF=2.5 C.C^S DAILY

REACTIONS (1)
  - Drug administration error [Unknown]
